FAERS Safety Report 7788819-0 (Version None)
Quarter: 2011Q3

REPORT INFORMATION
  Report Type: 
  Country: None (occurrence: None)
  Receive Date: 20110928
  Receipt Date: 20110923
  Transmission Date: 20111222
  Serious: Yes (Hospitalization)
  Sender: FDA-Public Use
  Company Number: 2011NUEUSA00040

PATIENT
  Sex: Female

DRUGS (2)
  1. NUEDEXTA [Suspect]
     Indication: AFFECT LABILITY
     Dosage: 1 CAP, QD, 1 CAP, BID
     Dates: start: 20110801, end: 20110801
  2. NUEDEXTA [Suspect]
     Indication: AFFECT LABILITY
     Dosage: 1 CAP, QD, 1 CAP, BID
     Dates: start: 20110801

REACTIONS (2)
  - RESPIRATORY FAILURE [None]
  - CATATONIA [None]
